FAERS Safety Report 6285674-5 (Version None)
Quarter: 2009Q3

REPORT INFORMATION
  Report Type: 
  Country: None (occurrence: None)
  Receive Date: 20090724
  Receipt Date: 20090717
  Transmission Date: 20100115
  Serious: Yes (Other)
  Sender: FDA-Public Use
  Company Number: IPS_01581_2009

PATIENT
  Sex: Male
  Weight: 73.9363 kg

DRUGS (8)
  1. APOKYN [Suspect]
     Indication: PARKINSON'S DISEASE
     Dosage: (0.2 ML PRN  SUBCUTANEOUS)
     Route: 058
     Dates: start: 20090413, end: 20090101
  2. CLONAZEPAM [Concomitant]
  3. AZILECT /01759902/ [Concomitant]
  4. CARBIDOPA + LEVODOPA [Concomitant]
  5. STALEVO 100 [Concomitant]
  6. TIGAN [Concomitant]
  7. IMITREX /01044801/ [Concomitant]
  8. ROPINIROLE [Concomitant]

REACTIONS (4)
  - LOSS OF CONSCIOUSNESS [None]
  - NAUSEA [None]
  - PALLOR [None]
  - RESPIRATORY RATE DECREASED [None]
